FAERS Safety Report 24013127 (Version 1)
Quarter: 2024Q2

REPORT INFORMATION
  Report Type: Spontaneous
  Country: HU (occurrence: HU)
  Receive Date: 20240626
  Receipt Date: 20240626
  Transmission Date: 20240716
  Serious: Yes (Other)
  Sender: FDA-Public Use
  Company Number: HU-ROCHE-10000007287

PATIENT
  Age: 62 Year
  Sex: Female

DRUGS (3)
  1. CELLCEPT [Suspect]
     Active Substance: MYCOPHENOLATE MOFETIL
     Indication: Prophylaxis against graft versus host disease
     Route: 048
  2. CYCLOPHOSPHAMIDE [Suspect]
     Active Substance: CYCLOPHOSPHAMIDE
     Indication: Prophylaxis against graft versus host disease
     Route: 065
  3. TACROLIMUS [Suspect]
     Active Substance: TACROLIMUS
     Indication: Prophylaxis against graft versus host disease
     Route: 065

REACTIONS (8)
  - Off label use [Unknown]
  - Mucosal inflammation [Unknown]
  - Viral haemorrhagic cystitis [Unknown]
  - Bacteraemia [Unknown]
  - Parainfluenzae virus infection [Unknown]
  - Human herpesvirus 6 infection reactivation [Unknown]
  - Cytomegalovirus infection reactivation [Unknown]
  - BK virus infection [Unknown]
